FAERS Safety Report 8385473 (Version 2)
Quarter: 2013Q4

REPORT INFORMATION
  Report Type: Spontaneous
  Country: US (occurrence: None)
  Receive Date: 20111221
  Receipt Date: 20131224
  Transmission Date: 20140711
  Serious: Yes (Hospitalization)
  Sender: FDA-Public Use
  Company Number: PHHY2011US65535

PATIENT
  Age: 52 Year
  Sex: Male
  Weight: 66.6 kg

DRUGS (1)
  1. EXJADE [Suspect]
     Indication: SICKLE CELL ANAEMIA
     Dosage: 1000 MG, DAILY, ORAL
     Route: 048
     Dates: start: 20070829

REACTIONS (3)
  - Sickle cell anaemia with crisis [None]
  - Abdominal distension [None]
  - Pain [None]
